FAERS Safety Report 7108047-1 (Version None)
Quarter: 2010Q4

REPORT INFORMATION
  Report Type: 
  Country: None (occurrence: None)
  Receive Date: 20101117
  Receipt Date: 20101109
  Transmission Date: 20110411
  Serious: Yes (Hospitalization)
  Sender: FDA-Public Use
  Company Number: NL-MPIJNJ-2010-00946

PATIENT

DRUGS (24)
  1. VELCADE [Suspect]
     Indication: MULTIPLE MYELOMA
     Dosage: 2.47 MG, UNK
     Route: 065
     Dates: start: 20090928, end: 20100107
  2. TOLBUTAMIDE [Concomitant]
     Indication: DIABETES MELLITUS
     Dosage: 1000 MG, UNK
     Route: 048
     Dates: end: 20091201
  3. METFORMIN HCL [Concomitant]
     Indication: DIABETES MELLITUS
     Dosage: 3000 MG, UNK
     Route: 048
     Dates: end: 20091117
  4. HYDROCHLOROTHIAZIDE [Concomitant]
     Indication: DIURETIC THERAPY
     Dosage: 12.5 MG, UNK
     Route: 048
  5. ATACAND [Concomitant]
     Indication: HYPERTENSION
     Dosage: 4 MG, UNK
     Route: 048
  6. METOPROLOL [Concomitant]
     Indication: ISCHAEMIC HEART DISEASE PROPHYLAXIS
     Dosage: 200 MG, UNK
     Route: 048
     Dates: end: 20091201
  7. METOPROLOL [Concomitant]
     Dosage: 100 MG, UNK
     Route: 048
     Dates: start: 20091207
  8. ASCAL                              /00002702/ [Concomitant]
     Indication: THROMBOSIS PROPHYLAXIS
     Dosage: 100 MG, UNK
     Route: 048
  9. CRESTOR [Concomitant]
     Indication: HYPERCHOLESTEROLAEMIA
     Dosage: 5 MG, UNK
     Route: 048
  10. FUROSEMIDE [Concomitant]
     Indication: DIURETIC THERAPY
     Dosage: 20 MG, UNK
     Route: 042
     Dates: start: 20091008, end: 20091008
  11. FUROSEMIDE [Concomitant]
     Dosage: 20 MG, UNK
     Route: 042
     Dates: start: 20101113, end: 20091113
  12. BLOOD CELLS, PACKED HUMAN [Concomitant]
     Dosage: 2 UNK, UNK
     Route: 042
     Dates: start: 20091008, end: 20091008
  13. BLOOD CELLS, PACKED HUMAN [Concomitant]
     Dosage: 2 UNK, UNK
     Route: 042
     Dates: start: 20091113, end: 20091113
  14. LANTUS [Concomitant]
     Indication: DIABETES MELLITUS
     Route: 058
  15. XYZAL [Concomitant]
     Dosage: 5 MG, UNK
     Route: 048
  16. GLIMEPIRIDE [Concomitant]
     Indication: DIABETES MELLITUS
     Dosage: 2 MG, UNK
     Route: 048
     Dates: start: 20100115
  17. APD [Concomitant]
     Indication: MULTIPLE MYELOMA
     Dosage: 60 MG, UNK
     Route: 042
  18. PREDNISOLONE [Concomitant]
     Indication: MULTIPLE MYELOMA
     Dosage: 10 MG, UNK
     Route: 048
     Dates: end: 20100104
  19. LOPERAMIDE [Concomitant]
     Indication: DIARRHOEA
     Dosage: 2 MG, UNK
     Route: 048
     Dates: start: 20100104
  20. HIDROXOCOBALAMINA [Concomitant]
     Indication: VITAMIN B12 DEFICIENCY
     Dosage: 1 MG, UNK
  21. NORMACOL                           /00119401/ [Concomitant]
     Indication: CONSTIPATION
     Dosage: 600 MG, UNK
     Route: 048
     Dates: start: 20091130, end: 20091201
  22. MOVICOLON [Concomitant]
     Indication: CONSTIPATION
     Dosage: UNK
     Route: 048
     Dates: start: 20091203, end: 20091207
  23. CIPROXINE                          /00697201/ [Concomitant]
     Dosage: 500 MG, UNK
     Route: 048
     Dates: start: 20091214
  24. TEMAZEPAM [Concomitant]
     Indication: INSOMNIA
     Dosage: 10 MG, UNK
     Route: 048
     Dates: start: 20100111

REACTIONS (2)
  - MUSCULAR WEAKNESS [None]
  - TREMOR [None]
